FAERS Safety Report 6522405-5 (Version None)
Quarter: 2009Q4

REPORT INFORMATION
  Report Type: 
  Country: None (occurrence: None)
  Receive Date: 20091222
  Receipt Date: 20091222
  Transmission Date: 20100525
  Serious: Yes (Other)
  Sender: FDA-Public Use
  Company Number: US-SEPTODONT-200900299

PATIENT
  Age: 60 Year
  Sex: Female
  Weight: 52 kg

DRUGS (1)
  1. XYLOCAINE W/ EPINEPHRENE [Suspect]
     Indication: LOCAL ANAESTHESIA
     Dosage: 0.5 CARTRIDGE DENTAL
     Route: 004
     Dates: start: 20091112

REACTIONS (3)
  - CONVULSION [None]
  - ENURESIS [None]
  - REFUSAL OF TREATMENT BY PATIENT [None]
